FAERS Safety Report 7892822-X (Version None)
Quarter: 2011Q4

REPORT INFORMATION
  Report Type: 
  Country: None (occurrence: None)
  Receive Date: 20111104
  Receipt Date: 20111102
  Transmission Date: 20120403
  Serious: Yes (Hospitalization)
  Sender: FDA-Public Use
  Company Number: FR-PFIZER INC-2011261241

PATIENT
  Age: 69 Year
  Sex: Male

DRUGS (7)
  1. MYCAMINE [Interacting]
     Indication: ANTIBIOTIC THERAPY
     Dosage: 100 MG, SINGLE
     Route: 042
     Dates: start: 20110628, end: 20110628
  2. BENDAMUSTINE HYDROCHLORIDE [Concomitant]
     Dosage: UNK
     Dates: start: 20110620
  3. CORDARONE [Suspect]
     Indication: ATRIAL FIBRILLATION
     Dosage: 200 MG, 1X/DAY
     Route: 048
     Dates: start: 20110628, end: 20110628
  4. IMIPENEM AND CILASTATIN SODIUM [Concomitant]
     Dosage: UNK
  5. CORDARONE [Interacting]
     Dosage: 300 MG, SINGLE
     Route: 017
     Dates: start: 20110628, end: 20110628
  6. RITUXIMAB [Concomitant]
     Dosage: UNK
     Dates: start: 20110620
  7. VANCOMYCIN HYDROCHLORIDE [Concomitant]
     Dosage: UNK

REACTIONS (3)
  - COAGULATION FACTOR V LEVEL DECREASED [None]
  - CYTOLYTIC HEPATITIS [None]
  - DRUG INTERACTION [None]
